FAERS Safety Report 16145890 (Version 2)
Quarter: 2019Q2

REPORT INFORMATION
  Report Type: Report from Study
  Country: US (occurrence: US)
  Receive Date: 20190402
  Receipt Date: 20190406
  Transmission Date: 20190711
  Serious: Yes (Other)
  Sender: FDA-Public Use
  Company Number: US-UCBSA-2019013435

PATIENT
  Sex: Female

DRUGS (2)
  1. LEVETIRACETAM. [Suspect]
     Active Substance: LEVETIRACETAM
     Indication: PRODUCT USED FOR UNKNOWN INDICATION
     Dosage: 1500MG IN DAY AND 2000MG AT NIGHT, 2X/DAY (BID)
  2. LAMICTAL [Concomitant]
     Active Substance: LAMOTRIGINE
     Indication: PRODUCT USED FOR UNKNOWN INDICATION
     Dosage: 200 AT DAY AND 250 MG AT NIGHT, 2X/DAY (BID)

REACTIONS (8)
  - Intentional product misuse [Unknown]
  - Tonic convulsion [Unknown]
  - Emotional disorder [Unknown]
  - Generalised tonic-clonic seizure [Unknown]
  - Fatigue [Unknown]
  - Intentional overdose [Unknown]
  - Clonic convulsion [Unknown]
  - Dizziness [Unknown]
